FAERS Safety Report 4708008-3 (Version None)
Quarter: 2005Q3

REPORT INFORMATION
  Report Type: 
  Country: None (occurrence: None)
  Receive Date: 20050707
  Receipt Date: 20050627
  Transmission Date: 20060218
  Serious: Yes (Other)
  Sender: FDA-Public Use
  Company Number: IL-BRISTOL-MYERS SQUIBB COMPANY-13017215

PATIENT
  Age: 17 Year
  Sex: Female

DRUGS (6)
  1. METHOTREXATE [Suspect]
     Indication: BONE SARCOMA
     Route: 042
  2. DOXORUBICIN HCL [Suspect]
     Indication: BONE SARCOMA
  3. IFOSFAMIDE [Suspect]
     Indication: BONE SARCOMA
  4. CISPLATIN [Suspect]
     Indication: BONE SARCOMA
  5. LEUCOVORIN [Concomitant]
  6. ONDANSETRON [Concomitant]

REACTIONS (1)
  - ERYTHEMA [None]
